FAERS Safety Report 23062827 (Version 1)
Quarter: 2023Q4

REPORT INFORMATION
  Report Type: Spontaneous
  Country: FR (occurrence: FR)
  Receive Date: 20231013
  Receipt Date: 20231013
  Transmission Date: 20240110
  Serious: Yes (Hospitalization)
  Sender: FDA-Public Use
  Company Number: None

PATIENT
  Age: 35 Year
  Sex: Male
  Weight: 98 kg

DRUGS (5)
  1. ETOPOSIDE [Suspect]
     Active Substance: ETOPOSIDE
     Indication: Osteosarcoma
     Dosage: 20 MG/ML,C1D1 IU ON 17/04 C4D1 ON 19/06 ETOPOSIDE 100MG/M2
     Dates: start: 20230417, end: 20230622
  2. IFOSFAMIDE [Suspect]
     Active Substance: IFOSFAMIDE
     Indication: Osteosarcoma
     Dosage: 2 G, API/AI 5 TREATMENTS OF API: IFOSFAMIDE D2-D3 AI: IFOSFAMIDE D1-D2
     Dates: start: 20230417, end: 20230622
  3. CISPLATIN [Concomitant]
     Active Substance: CISPLATIN
     Indication: Osteosarcoma
     Dosage: 1 MG/ML, CONCENTRATE FOR SOLUTION FOR INFUSION; API: CISPLATIN D1
     Dates: start: 20221114, end: 20230206
  4. DOXORUBICIN [Concomitant]
     Active Substance: DOXORUBICIN
     Indication: Osteosarcoma
     Dosage: 2 MG/ML, SOLUTION FOR INFUSION; API/AI PROTOCOL 5 CYCLES OF DOXORUBICIN 60MG/M2 D1
     Dates: start: 20221114, end: 20230206
  5. IFOSFAMIDE [Suspect]
     Active Substance: IFOSFAMIDE
     Indication: Osteosarcoma
     Dosage: 2 G, C1D1 IU ON 17/04 C4D1 ON 19/06 IFOSFAMIDE 4000MG/M2 I.E. 9200MG TOTAL DOSE PER DAY
     Dates: start: 20230417, end: 20230622

REACTIONS (2)
  - Pancytopenia [Recovering/Resolving]
  - Fanconi syndrome [Recovering/Resolving]

NARRATIVE: CASE EVENT DATE: 20230628
